FAERS Safety Report 10097512 (Version 1)
Quarter: 2014Q2

REPORT INFORMATION
  Report Type: Spontaneous
  Country: US (occurrence: US)
  Receive Date: 20140423
  Receipt Date: 20140423
  Transmission Date: 20141212
  Serious: Yes (Hospitalization, Other)
  Sender: FDA-Public Use
  Company Number: US-AMGEN-USASP2014028143

PATIENT
  Age: 81 Year
  Sex: Female

DRUGS (3)
  1. PROLIA [Suspect]
     Indication: OSTEOPOROSIS POSTMENOPAUSAL
     Route: 065
  2. OMEPRAZOLE [Concomitant]
     Dosage: 20 MG, UNK
  3. PRAVASTATIN [Concomitant]
     Dosage: 80 MG, UNK

REACTIONS (2)
  - Dyspnoea [Recovered/Resolved]
  - Cardiac murmur [Recovered/Resolved]
